FAERS Safety Report 15732872 (Version 5)
Quarter: 2019Q1

REPORT INFORMATION
  Report Type: Spontaneous
  Country: CA (occurrence: CA)
  Receive Date: 20181217
  Receipt Date: 20190110
  Transmission Date: 20190417
  Serious: Yes (Life-Threatening, Hospitalization, Other)
  Sender: FDA-Public Use
  Company Number: CA-ROCHE-2229990

PATIENT
  Age: 16 Year
  Sex: Female

DRUGS (7)
  1. XOLAIR [Suspect]
     Active Substance: OMALIZUMAB
     Indication: CHRONIC SPONTANEOUS URTICARIA
     Dosage: 300 MG, EVERY 4 WEEKS
     Route: 058
     Dates: start: 20180905
  2. BENADRYL [Concomitant]
     Active Substance: DIPHENHYDRAMINE HYDROCHLORIDE
     Indication: PRODUCT USED FOR UNKNOWN INDICATION
     Dosage: UNK
     Route: 048
     Dates: start: 201204
  3. ZANTAC [Concomitant]
     Active Substance: RANITIDINE HYDROCHLORIDE
     Indication: PRODUCT USED FOR UNKNOWN INDICATION
     Dosage: 2 DF, QD
     Route: 048
     Dates: start: 201804
  4. XOLAIR [Suspect]
     Active Substance: OMALIZUMAB
     Dosage: 300 MG, EVERY 4 WEEKS
     Route: 058
     Dates: start: 20181003
  5. XOLAIR [Suspect]
     Active Substance: OMALIZUMAB
     Dosage: 300 MG, EVERY 4 WEEKS
     Route: 058
     Dates: start: 20181108
  6. XOLAIR [Suspect]
     Active Substance: OMALIZUMAB
     Dosage: 300 MG, EVERY 4 WEEKS
     Route: 058
     Dates: start: 20181205
  7. RUPALL [Concomitant]
     Active Substance: RUPATADINE FUMARATE
     Indication: PRODUCT USED FOR UNKNOWN INDICATION
     Dosage: 1 DF, QD
     Route: 065

REACTIONS (25)
  - Erythema [Recovered/Resolved]
  - Urticaria [Unknown]
  - Mouth swelling [Unknown]
  - Laryngospasm [Unknown]
  - Nausea [Recovered/Resolved]
  - Oropharyngeal swelling [Unknown]
  - Dizziness [Recovered/Resolved]
  - Oedema mouth [Unknown]
  - Therapeutic response decreased [Unknown]
  - Obstructive airways disorder [Unknown]
  - Angioedema [Unknown]
  - Dyspnoea [Unknown]
  - Anaphylactic reaction [Unknown]
  - Laryngeal oedema [Unknown]
  - Tongue oedema [Unknown]
  - Skin plaque [Unknown]
  - Malaise [Unknown]
  - Peripheral swelling [Unknown]
  - Muscle spasms [Unknown]
  - Oropharyngeal spasm [Unknown]
  - Blood pressure decreased [Not Recovered/Not Resolved]
  - Tongue spasm [Unknown]
  - Swollen tongue [Unknown]
  - Swelling face [Unknown]
  - Oropharyngeal oedema [Unknown]

NARRATIVE: CASE EVENT DATE: 20180905
